FAERS Safety Report 19828102 (Version 2)
Quarter: 2022Q3

REPORT INFORMATION
  Report Type: Spontaneous
  Country: US (occurrence: US)
  Receive Date: 20210914
  Receipt Date: 20220910
  Transmission Date: 20221027
  Serious: Yes (Other)
  Sender: FDA-Public Use
  Company Number: US-AMGEN-USASP2021140143

PATIENT

DRUGS (2)
  1. BEVACIZUMAB [Suspect]
     Active Substance: BEVACIZUMAB
     Indication: Retinopathy of prematurity
     Dosage: UNK
  2. BEVACIZUMAB [Suspect]
     Active Substance: BEVACIZUMAB
     Indication: Off label use

REACTIONS (5)
  - Growth retardation [Unknown]
  - Cerebral palsy [Unknown]
  - Deafness [Unknown]
  - Off label use [Unknown]
  - Neurodevelopmental disorder [Unknown]
